FAERS Safety Report 6898641-5 (Version None)
Quarter: 2010Q3

REPORT INFORMATION
  Report Type: 
  Country: None (occurrence: None)
  Receive Date: 20100802
  Receipt Date: 20071113
  Transmission Date: 20110219
  Serious: No
  Sender: FDA-Public Use
  Company Number: US-PFIZER INC-2007093730

PATIENT
  Sex: Female

DRUGS (2)
  1. LYRICA [Suspect]
     Indication: FIBROMYALGIA
     Dates: start: 20070101
  2. TOPAMAX [Concomitant]
     Indication: MIGRAINE

REACTIONS (3)
  - FEELING DRUNK [None]
  - PAIN [None]
  - WEIGHT INCREASED [None]
